FAERS Safety Report 4270022-2 (Version None)
Quarter: 2004Q1

REPORT INFORMATION
  Report Type: 
  Country: None (occurrence: None)
  Receive Date: 20040114
  Receipt Date: 20021210
  Transmission Date: 20041129
  Serious: No
  Sender: FDA-Public Use
  Company Number: US-GLAXOSMITHKLINE-A0388679A

PATIENT
  Age: 63 Year
  Sex: Female

DRUGS (4)
  1. WELLBUTRIN [Suspect]
     Indication: DEPRESSION
     Dosage: 75MG SEE DOSAGE TEXT
     Route: 048
  2. LEVOXYL [Concomitant]
  3. HORMONES [Concomitant]
  4. TEGRETOL [Concomitant]

REACTIONS (1)
  - HAIR COLOUR CHANGES [None]
